FAERS Safety Report 4750609-0 (Version None)
Quarter: 2005Q3

REPORT INFORMATION
  Report Type: 
  Country: None (occurrence: None)
  Receive Date: 20050823
  Receipt Date: 20050812
  Transmission Date: 20060218
  Serious: Yes (Life-Threatening, Hospitalization)
  Sender: FDA-Public Use
  Company Number: DE-ROCHE-414244

PATIENT
  Age: 43 Year
  Sex: Male
  Weight: 73 kg

DRUGS (2)
  1. COPEGUS [Suspect]
     Route: 048
     Dates: start: 20040715, end: 20050615
  2. PEGASYS [Concomitant]
     Route: 058
     Dates: start: 20040715, end: 20050615

REACTIONS (5)
  - GENERAL PHYSICAL HEALTH DETERIORATION [None]
  - GENERALISED OEDEMA [None]
  - HEPATIC FUNCTION ABNORMAL [None]
  - JAUNDICE [None]
  - TRANSAMINASES INCREASED [None]
